FAERS Safety Report 7377476-3 (Version None)
Quarter: 2011Q1

REPORT INFORMATION
  Report Type: 
  Country: None (occurrence: None)
  Receive Date: 20110315
  Receipt Date: 20110303
  Transmission Date: 20110831
  Serious: Yes (Hospitalization, Other)
  Sender: FDA-Public Use
  Company Number: 025386

PATIENT
  Sex: Male
  Weight: 80.2867 kg

DRUGS (3)
  1. ANTIDEPRESSANTS [Concomitant]
  2. PERCOCET [Concomitant]
  3. CIMZIA [Suspect]
     Indication: CROHN'S DISEASE
     Dosage: (400 MG 1X/2 WEEKS, INDUCTION DOSE (0-2-4) SUBCUTANEOUS)
     Route: 058
     Dates: start: 20110113, end: 20110113

REACTIONS (12)
  - DYSPNOEA [None]
  - CHEST PAIN [None]
  - BALANCE DISORDER [None]
  - DYSARTHRIA [None]
  - PARAESTHESIA [None]
  - VISION BLURRED [None]
  - CHEST DISCOMFORT [None]
  - HEADACHE [None]
  - DISORIENTATION [None]
  - FEELING ABNORMAL [None]
  - DRUG HYPERSENSITIVITY [None]
  - THINKING ABNORMAL [None]
